FAERS Safety Report 11806390 (Version 1)
Quarter: 2015Q4

REPORT INFORMATION
  Report Type: Spontaneous
  Country: US (occurrence: None)
  Receive Date: 20151204
  Receipt Date: 20151204
  Transmission Date: 20160305
  Serious: Yes (Hospitalization)
  Sender: FDA-Public Use
  Company Number: None

PATIENT
  Age: 72 Year
  Sex: Female
  Weight: 62.14 kg

DRUGS (2)
  1. NUCYNTA [Suspect]
     Active Substance: TAPENTADOL HYDROCHLORIDE
     Indication: PROCEDURAL PAIN
     Route: 048
     Dates: start: 20151201, end: 20151203
  2. NUCYNTA [Suspect]
     Active Substance: TAPENTADOL HYDROCHLORIDE
     Indication: SHOULDER ARTHROPLASTY
     Route: 048
     Dates: start: 20151201, end: 20151203

REACTIONS (4)
  - Myalgia [None]
  - Bone pain [None]
  - Oxygen saturation decreased [None]
  - Blood pressure decreased [None]

NARRATIVE: CASE EVENT DATE: 20151202
